FAERS Safety Report 9339140 (Version 1)
Quarter: 2013Q2

REPORT INFORMATION
  Report Type: Spontaneous
  Country: US (occurrence: None)
  Receive Date: 20130606
  Receipt Date: 20130606
  Transmission Date: 20140414
  Serious: No
  Sender: FDA-Public Use
  Company Number: None

PATIENT
  Age: 15 Year
  Sex: Female
  Weight: 80.3 kg

DRUGS (1)
  1. WELLBUTRIN XL 300 MG [Suspect]
     Dosage: QAM
     Route: 048
     Dates: start: 20130531, end: 20130602

REACTIONS (2)
  - Abdominal pain [None]
  - Nausea [None]
